FAERS Safety Report 10152990 (Version 2)
Quarter: 2014Q2

REPORT INFORMATION
  Report Type: Report from Study
  Country: NL (occurrence: NL)
  Receive Date: 20140505
  Receipt Date: 20140505
  Transmission Date: 20141212
  Serious: Yes (Other)
  Sender: FDA-Public Use
  Company Number: NL-ABBVIE-12P-114-0948658-00

PATIENT
  Age: 71 Year
  Sex: Male
  Weight: 73 kg

DRUGS (3)
  1. LUCRIN [Suspect]
     Indication: PROSTATE CANCER
     Route: 058
     Dates: start: 20110517
  2. LUCRIN [Suspect]
     Indication: PROSTATE CANCER
     Route: 058
     Dates: start: 20120217, end: 201211
  3. RADIATION [Concomitant]
     Indication: PROSTATE CANCER
     Dates: end: 20110529

REACTIONS (1)
  - Rectal haemorrhage [Not Recovered/Not Resolved]
